FAERS Safety Report 11730080 (Version 2)
Quarter: 2015Q4

REPORT INFORMATION
  Report Type: Report from Study
  Country: ES (occurrence: ES)
  Receive Date: 20151112
  Receipt Date: 20151118
  Transmission Date: 20160304
  Serious: Yes (Other)
  Sender: FDA-Public Use
  Company Number: ES-GILEAD-2015-0181288

PATIENT

DRUGS (4)
  1. RILPIVIRINE HYDROCHLORIDE [Concomitant]
     Active Substance: RILPIVIRINE HYDROCHLORIDE
     Dosage: UNK UNKNOWN, UNK
     Route: 065
  2. EMTRICITABINE/RILPIVIRINE/TENOFOVIR DF [Suspect]
     Active Substance: EMTRICITABINE\RILPIVIRINE\TENOFOVIR DISOPROXIL FUMARATE
     Indication: HIV INFECTION
     Dosage: UNK UNKNOWN, UNK
     Route: 065
  3. RALTEGRAVIR. [Concomitant]
     Active Substance: RALTEGRAVIR
     Dosage: UNK UNKNOWN, UNK
     Route: 065
  4. EMTRICITABINE/RILPIVIRINE/TENOFOVIR DF [Suspect]
     Active Substance: EMTRICITABINE\RILPIVIRINE\TENOFOVIR DISOPROXIL FUMARATE
     Indication: HEPATITIS C

REACTIONS (2)
  - Cerebrovascular accident [Unknown]
  - Drug interaction [Unknown]

NARRATIVE: CASE EVENT DATE: 20140214
